FAERS Safety Report 12171657 (Version 1)
Quarter: 2016Q1

REPORT INFORMATION
  Report Type: Spontaneous
  Country: US (occurrence: None)
  Receive Date: 20160310
  Receipt Date: 20160310
  Transmission Date: 20160526
  Serious: Yes (Hospitalization)
  Sender: FDA-Public Use
  Company Number: None

PATIENT
  Age: 85 Year
  Sex: Male
  Weight: 72.9 kg

DRUGS (3)
  1. CLADRIBINE. [Suspect]
     Active Substance: CLADRIBINE
     Indication: MARGINAL ZONE LYMPHOMA
  2. OBINUTUZUMAB [Suspect]
     Active Substance: OBINUTUZUMAB
     Indication: DRUG HYPERSENSITIVITY
  3. OBINUTUZUMAB [Suspect]
     Active Substance: OBINUTUZUMAB
     Indication: MARGINAL ZONE LYMPHOMA

REACTIONS (3)
  - Vomiting [None]
  - Nausea [None]
  - Pancytopenia [None]

NARRATIVE: CASE EVENT DATE: 20151231
